FAERS Safety Report 9366216 (Version 1)
Quarter: 2013Q2

REPORT INFORMATION
  Report Type: Spontaneous
  Country: US (occurrence: US)
  Receive Date: 20130625
  Receipt Date: 20130625
  Transmission Date: 20140414
  Serious: Yes (Other)
  Sender: FDA-Public Use
  Company Number: US-ASTELLAS-2013US006505

PATIENT
  Age: 60 Year
  Sex: Male

DRUGS (1)
  1. XTANDI [Suspect]
     Indication: PROSTATE CANCER
     Dosage: 160 MG, UID/QD
     Route: 048
     Dates: start: 20130205

REACTIONS (6)
  - Delusion [Unknown]
  - Metastases to lung [Unknown]
  - Muscle twitching [Unknown]
  - Sleep talking [Unknown]
  - Logorrhoea [Unknown]
  - Insomnia [Unknown]
